FAERS Safety Report 5178994-9 (Version None)
Quarter: 2006Q4

REPORT INFORMATION
  Report Type: 
  Country: None (occurrence: None)
  Receive Date: 20061215
  Receipt Date: 20061215
  Transmission Date: 20070319
  Serious: Yes (Life-Threatening, Other)
  Sender: FDA-Public Use
  Company Number: None

PATIENT
  Age: 52 Year
  Sex: Female

DRUGS (1)
  1. BEXTRA [Suspect]
     Indication: OSTEOARTHRITIS
     Dosage: PO
     Route: 048
     Dates: start: 20041001, end: 20041031

REACTIONS (2)
  - DRUG HYPERSENSITIVITY [None]
  - STEVENS-JOHNSON SYNDROME [None]
